FAERS Safety Report 4692929-4 (Version None)
Quarter: 2005Q2

REPORT INFORMATION
  Report Type: 
  Country: None (occurrence: None)
  Receive Date: 20050615
  Receipt Date: 20050602
  Transmission Date: 20051028
  Serious: Yes (Death, Life-Threatening, Hospitalization, Other)
  Sender: FDA-Public Use
  Company Number: 18750

PATIENT
  Age: 79 Year
  Sex: Female

DRUGS (1)
  1. CISPLATIN [Suspect]
     Indication: OVARIAN CANCER
     Dosage: IV
     Route: 042
     Dates: start: 20040129

REACTIONS (3)
  - DISEASE PROGRESSION [None]
  - NEUTROPENIA [None]
  - OVARIAN CANCER [None]
